FAERS Safety Report 9076956 (Version 1)
Quarter: 2013Q1

REPORT INFORMATION
  Report Type: Report from Study
  Country: US (occurrence: US)
  Receive Date: 20130129
  Receipt Date: 20130129
  Transmission Date: 20140127
  Serious: Yes (Other)
  Sender: FDA-Public Use
  Company Number: US-ABBOTT-12P-163-0941138-00

PATIENT
  Sex: Male
  Weight: 81.72 kg

DRUGS (7)
  1. HUMIRA 40 MG/0.8 ML PEN [Suspect]
     Indication: PSORIASIS
     Dates: start: 20110628, end: 201108
  2. OXYCODONE [Suspect]
     Indication: ARTHRALGIA
     Dates: start: 201109, end: 201109
  3. DERMAREST SHAMPOO [Concomitant]
     Indication: PSORIASIS
  4. LOSARTAN [Concomitant]
     Indication: HYPERTENSION
  5. HYDROXYZINE [Concomitant]
     Indication: ANXIOLYTIC THERAPY
  6. HYDROXYZINE [Concomitant]
     Indication: PSORIASIS
  7. HYDROXYZINE [Concomitant]
     Indication: PRURITUS

REACTIONS (5)
  - Fall [Recovered/Resolved]
  - Wrist fracture [Recovered/Resolved]
  - Hallucination [Recovered/Resolved]
  - Feeling abnormal [Recovered/Resolved]
  - Psoriasis [Not Recovered/Not Resolved]
